FAERS Safety Report 10878059 (Version 1)
Quarter: 2015Q1

REPORT INFORMATION
  Report Type: Spontaneous
  Country: US (occurrence: US)
  Receive Date: 20150302
  Receipt Date: 20150302
  Transmission Date: 20150721
  Serious: No
  Sender: FDA-Public Use
  Company Number: US-ABBVIE-14P-163-1306819-00

PATIENT
  Age: 73 Year
  Sex: Male
  Weight: 85.81 kg

DRUGS (2)
  1. ANDROGEL [Suspect]
     Active Substance: TESTOSTERONE
     Indication: BLOOD TESTOSTERONE DECREASED
     Route: 061
     Dates: start: 2013, end: 2014
  2. ANDROGEL [Suspect]
     Active Substance: TESTOSTERONE
     Route: 061
     Dates: start: 2014

REACTIONS (2)
  - Blood thyroid stimulating hormone increased [Recovered/Resolved]
  - Blood testosterone decreased [Not Recovered/Not Resolved]

NARRATIVE: CASE EVENT DATE: 201410
